FAERS Safety Report 8680938 (Version 2)
Quarter: 2012Q4

REPORT INFORMATION
  Report Type: 
  Country: US (occurrence: US)
  Receive Date: 20120724
  Receipt Date: 20120911
  Transmission Date: 20130627
  Serious: Yes (Other)
  Sender: FDA-Public Use
  Company Number: US-PFIZER INC-2012173804

PATIENT
  Age: 76 Year
  Sex: Male

DRUGS (2)
  1. VIAGRA [Suspect]
     Dosage: 100 UNK, as needed (reported as 100 One tab PO daily as needed)
     Route: 048
  2. CIALIS [Suspect]
     Dosage: Strength: 10; One every 2 days

REACTIONS (1)
  - Deafness [Unknown]
